FAERS Safety Report 4498241-0 (Version None)
Quarter: 2004Q3

REPORT INFORMATION
  Report Type: 
  Country: None (occurrence: None)
  Receive Date: 20040927
  Receipt Date: 20040608
  Transmission Date: 20050211
  Serious: No
  Sender: FDA-Public Use
  Company Number: USA040669651

PATIENT
  Age: 49 Year
  Sex: Female

DRUGS (1)
  1. STRATTERA [Suspect]
     Dosage: 40 MG

REACTIONS (2)
  - EMOTIONAL DISTRESS [None]
  - PALPITATIONS [None]
